FAERS Safety Report 16573833 (Version 2)
Quarter: 2019Q3

REPORT INFORMATION
  Report Type: Report from Study
  Country: US (occurrence: US)
  Receive Date: 20190715
  Receipt Date: 20190802
  Transmission Date: 20191004
  Serious: Yes (Hospitalization, Other)
  Sender: FDA-Public Use
  Company Number: US-MYLANLABS-2019M1066259

PATIENT
  Age: 20 Year
  Sex: Male
  Weight: 115.66 kg

DRUGS (6)
  1. CLOZAPINE. [Suspect]
     Active Substance: CLOZAPINE
     Indication: PSYCHOTIC DISORDER
     Dosage: 250 MILLIGRAM, AM
  2. HALDOL [Concomitant]
     Active Substance: HALOPERIDOL
     Dosage: 200 MILLIGRAM, 4XW
     Route: 030
  3. CLOZAPINE. [Suspect]
     Active Substance: CLOZAPINE
     Dosage: 100 MILLIGRAM, AM
  4. VALIUM [Concomitant]
     Active Substance: DIAZEPAM
     Dosage: 10 MILLIGRAM, TID
  5. CLOZAPINE. [Suspect]
     Active Substance: CLOZAPINE
     Dosage: 300 MILLIGRAM, HS
  6. CLOZAPINE. [Suspect]
     Active Substance: CLOZAPINE
     Dosage: 100 MILLIGRAM, HS

REACTIONS (3)
  - Somnolence [Unknown]
  - Drooling [Recovering/Resolving]
  - Hospitalisation [Recovered/Resolved]

NARRATIVE: CASE EVENT DATE: 20190312
